FAERS Safety Report 7330653-X (Version None)
Quarter: 2011Q1

REPORT INFORMATION
  Report Type: 
  Country: None (occurrence: None)
  Receive Date: 20110225
  Receipt Date: 20110225
  Transmission Date: 20110831
  Serious: Yes (Other)
  Sender: FDA-Public Use
  Company Number: None

PATIENT
  Age: 48 Year
  Sex: Female
  Weight: 104.3273 kg

DRUGS (1)
  1. FRESHKOTE LUBRICANT EYE MODERATE TO SEVERE DRY EYE FOCUS LABORATORIES, [Suspect]
     Indication: DRY EYE
     Dosage: 1 DROP 4 X DAY OPHTHALMIC
     Route: 047
     Dates: start: 20110127, end: 20110128

REACTIONS (3)
  - PHOTOPHOBIA [None]
  - GLARE [None]
  - EYE IRRITATION [None]
